FAERS Safety Report 4599931-1 (Version None)
Quarter: 2005Q1

REPORT INFORMATION
  Report Type: 
  Country: None (occurrence: None)
  Receive Date: 20050303
  Receipt Date: 20050209
  Transmission Date: 20050727
  Serious: Yes (Hospitalization)
  Sender: FDA-Public Use
  Company Number: EWC050242649

PATIENT
  Age: 1 Day
  Sex: Female
  Weight: 4 kg

DRUGS (1)
  1. FLUOXETINE [Suspect]

REACTIONS (5)
  - BLOOD PH DECREASED [None]
  - DRUG EXPOSURE DURING PREGNANCY [None]
  - DRUG WITHDRAWAL SYNDROME NEONATAL [None]
  - HYPERTONIA [None]
  - TREMOR [None]
